FAERS Safety Report 17959292 (Version 1)
Quarter: 2020Q2

REPORT INFORMATION
  Report Type: Spontaneous
  Country: US (occurrence: US)
  Receive Date: 20200629
  Receipt Date: 20200629
  Transmission Date: 20200714
  Serious: No
  Sender: FDA-Public Use
  Company Number: US-ASTRAZENECA-2020SE81286

PATIENT
  Age: 12658 Day
  Sex: Female
  Weight: 98.9 kg

DRUGS (1)
  1. FASENRA [Suspect]
     Active Substance: BENRALIZUMAB
     Indication: ASTHMA
     Dosage: 30MG/ML EVERY FOUR WEEKS
     Route: 058
     Dates: start: 20200624

REACTIONS (2)
  - Chest pain [Unknown]
  - Aspiration [Unknown]

NARRATIVE: CASE EVENT DATE: 20200624
